FAERS Safety Report 7224726-X (Version None)
Quarter: 2011Q1

REPORT INFORMATION
  Report Type: 
  Country: None (occurrence: None)
  Receive Date: 20110113
  Receipt Date: 20110106
  Transmission Date: 20110831
  Serious: Yes (Hospitalization, Other)
  Sender: FDA-Public Use
  Company Number: JP-JNJFOC-20110101923

PATIENT
  Age: 48 Year
  Sex: Male

DRUGS (7)
  1. PHENOBARBITAL [Concomitant]
     Indication: ILL-DEFINED DISORDER
     Route: 048
  2. VALPROATE SODIUM [Concomitant]
     Indication: ILL-DEFINED DISORDER
     Route: 048
  3. RISPERDAL [Suspect]
     Indication: SCHIZOPHRENIA
     Route: 048
  4. FLUNITRAZEPAM [Concomitant]
     Indication: ILL-DEFINED DISORDER
     Route: 048
  5. ZOTEPINE [Suspect]
     Indication: ILL-DEFINED DISORDER
     Route: 048
  6. NITRAZEPAM [Concomitant]
     Indication: ILL-DEFINED DISORDER
     Route: 048
  7. TRIAZOLAM [Concomitant]
     Indication: ILL-DEFINED DISORDER
     Route: 048

REACTIONS (3)
  - RESPIRATORY FAILURE [None]
  - CONVULSION [None]
  - NEUROLEPTIC MALIGNANT SYNDROME [None]
